FAERS Safety Report 4480216-9 (Version None)
Quarter: 2004Q4

REPORT INFORMATION
  Report Type: 
  Country: None (occurrence: None)
  Receive Date: 20041018
  Receipt Date: 20041006
  Transmission Date: 20050328
  Serious: Yes (Hospitalization)
  Sender: FDA-Public Use
  Company Number: 2004PK01575

PATIENT
  Age: 69 Year
  Sex: Male
  Weight: 73 kg

DRUGS (18)
  1. IRESSA [Suspect]
     Indication: TRANSITIONAL CELL CARCINOMA
     Dosage: 250 MG DAILY PO
     Route: 048
     Dates: start: 20040615
  2. GEMCITABINE [Suspect]
     Indication: TRANSITIONAL CELL CARCINOMA
     Dosage: 2313 MG IV
     Route: 042
     Dates: start: 20040615, end: 20040615
  3. GEMCITABINE [Suspect]
     Indication: TRANSITIONAL CELL CARCINOMA
     Dosage: 2313 MG IV
     Route: 042
     Dates: start: 20040623, end: 20040623
  4. GEMCITABINE [Suspect]
     Indication: TRANSITIONAL CELL CARCINOMA
     Dosage: 2313 MG IV
     Route: 042
     Dates: start: 20040707, end: 20040707
  5. GEMCITABINE [Suspect]
     Indication: TRANSITIONAL CELL CARCINOMA
     Dosage: 2313 MG IV
     Route: 042
     Dates: start: 20040715, end: 20040715
  6. GEMCITABINE [Suspect]
     Indication: TRANSITIONAL CELL CARCINOMA
     Dosage: 2313 MG IV
     Route: 042
     Dates: start: 20040728, end: 20040728
  7. GEMCITABINE [Suspect]
     Indication: TRANSITIONAL CELL CARCINOMA
     Dosage: 2313 MG IV
     Route: 042
     Dates: start: 20040805, end: 20040805
  8. GEMCITABINE [Suspect]
     Indication: TRANSITIONAL CELL CARCINOMA
     Dosage: 2313 MG IV
     Route: 042
     Dates: start: 20040818, end: 20040818
  9. GEMCITABINE [Suspect]
     Indication: TRANSITIONAL CELL CARCINOMA
     Dosage: 2313 MG IV
     Route: 042
     Dates: start: 20040826, end: 20040826
  10. GEMCITABINE [Suspect]
     Indication: TRANSITIONAL CELL CARCINOMA
     Dosage: 2313 MG IV
     Route: 042
     Dates: start: 20040908, end: 20040908
  11. GEMCITABINE [Suspect]
     Indication: TRANSITIONAL CELL CARCINOMA
     Dosage: 2313 MG IV
     Route: 042
     Dates: start: 20040916, end: 20040916
  12. CISPLATIN [Suspect]
     Indication: TRANSITIONAL CELL CARCINOMA
     Dosage: 129 MG IV
     Route: 042
     Dates: start: 20040615, end: 20040615
  13. CISPLATIN [Suspect]
     Indication: TRANSITIONAL CELL CARCINOMA
     Dosage: 129 MG IV
     Route: 042
     Dates: start: 20040707, end: 20040707
  14. CISPLATIN [Suspect]
     Indication: TRANSITIONAL CELL CARCINOMA
     Dosage: 129 MG IV
     Route: 042
     Dates: start: 20040728, end: 20040728
  15. CISPLATIN [Suspect]
     Indication: TRANSITIONAL CELL CARCINOMA
     Dosage: 129 MG IV
     Route: 042
     Dates: start: 20040818, end: 20040818
  16. CISPLATIN [Suspect]
     Indication: TRANSITIONAL CELL CARCINOMA
     Dosage: 129 MG IV
     Route: 042
     Dates: start: 20040908, end: 20040908
  17. MOLSIDOMIN [Concomitant]
  18. RAMIPRIL [Concomitant]

REACTIONS (4)
  - FEBRILE NEUTROPENIA [None]
  - HYPERTENSIVE CRISIS [None]
  - PANCYTOPENIA [None]
  - PULMONARY OEDEMA [None]
